FAERS Safety Report 21338549 (Version 2)
Quarter: 2022Q3

REPORT INFORMATION
  Report Type: Spontaneous
  Country: IT (occurrence: IT)
  Receive Date: 20220915
  Receipt Date: 20220928
  Transmission Date: 20221027
  Serious: Yes (Other)
  Sender: FDA-Public Use
  Company Number: IT-TEVA-2022-IT-2072330

PATIENT
  Age: 70 Year
  Sex: Female

DRUGS (4)
  1. MEMANTINE [Suspect]
     Active Substance: MEMANTINE
     Indication: Cognitive disorder
     Route: 065
  2. PALIPERIDONE [Suspect]
     Active Substance: PALIPERIDONE
     Indication: Delusion of parasitosis
     Dosage: 150 MG
     Route: 030
  3. PALIPERIDONE [Suspect]
     Active Substance: PALIPERIDONE
     Dosage: 100 MG
     Route: 030
  4. PALIPERIDONE [Suspect]
     Active Substance: PALIPERIDONE
     Route: 030

REACTIONS (5)
  - Extrapyramidal disorder [Unknown]
  - Parkinsonism [Unknown]
  - Agitation [Unknown]
  - Irritability [Unknown]
  - Restlessness [Unknown]
